FAERS Safety Report 17929648 (Version 1)
Quarter: 2020Q2

REPORT INFORMATION
  Report Type: Spontaneous
  Country: US (occurrence: US)
  Receive Date: 20200623
  Receipt Date: 20200623
  Transmission Date: 20200714
  Serious: No
  Sender: FDA-Public Use
  Company Number: None

PATIENT
  Age: 55 Year
  Sex: Male
  Weight: 134.1 kg

DRUGS (20)
  1. PRAVASTATIN. [Concomitant]
     Active Substance: PRAVASTATIN
  2. LASIX [Concomitant]
     Active Substance: FUROSEMIDE
  3. GLYBURIDE. [Concomitant]
     Active Substance: GLYBURIDE
  4. XARELTO [Concomitant]
     Active Substance: RIVAROXABAN
  5. SPIRONOLACTONE. [Concomitant]
     Active Substance: SPIRONOLACTONE
  6. SPRYCEL [Suspect]
     Active Substance: DASATINIB
     Indication: CHRONIC MYELOID LEUKAEMIA
     Route: 048
     Dates: start: 20200515, end: 20200623
  7. GABAPENTIN. [Concomitant]
     Active Substance: GABAPENTIN
  8. BUSPAR [Concomitant]
     Active Substance: BUSPIRONE HYDROCHLORIDE
  9. LISINOPRIL. [Concomitant]
     Active Substance: LISINOPRIL
  10. METFORMIN [Concomitant]
     Active Substance: METFORMIN HYDROCHLORIDE
  11. AMLODIPINE [Concomitant]
     Active Substance: AMLODIPINE BESYLATE
  12. PLAVIX [Concomitant]
     Active Substance: CLOPIDOGREL BISULFATE
  13. HYDRALAZINE [Concomitant]
     Active Substance: HYDRALAZINE HYDROCHLORIDE
  14. AMIODARONE [Concomitant]
     Active Substance: AMIODARONE
  15. SYNTHROID [Concomitant]
     Active Substance: LEVOTHYROXINE SODIUM
  16. PROCHLORPERAZINE. [Concomitant]
     Active Substance: PROCHLORPERAZINE
  17. ZOCOR [Concomitant]
     Active Substance: SIMVASTATIN
  18. ALBUTEROL. [Concomitant]
     Active Substance: ALBUTEROL
  19. MAG-OXIDE [Concomitant]
     Active Substance: MAGNESIUM OXIDE
  20. OXYCODONE [Concomitant]
     Active Substance: OXYCODONE

REACTIONS (1)
  - Dyspnoea [None]

NARRATIVE: CASE EVENT DATE: 20200623
